FAERS Safety Report 6448297-0 (Version None)
Quarter: 2009Q4

REPORT INFORMATION
  Report Type: 
  Country: None (occurrence: None)
  Receive Date: 20091120
  Receipt Date: 20091111
  Transmission Date: 20100525
  Serious: Yes (Other)
  Sender: FDA-Public Use
  Company Number: PHHY2009GB50308

PATIENT
  Sex: Female

DRUGS (2)
  1. TEGRETOL RETARD [Suspect]
     Route: 048
  2. TEGRETOL RETARD [Suspect]
     Dosage: 400 MG
     Route: 048
     Dates: start: 20091001

REACTIONS (1)
  - CONVULSION [None]
